FAERS Safety Report 22191051 (Version 1)
Quarter: 2023Q2

REPORT INFORMATION
  Report Type: Report from Study
  Country: US (occurrence: US)
  Receive Date: 20230410
  Receipt Date: 20230410
  Transmission Date: 20230722
  Serious: Yes (Other)
  Sender: FDA-Public Use
  Company Number: US-002147023-NVSC2023US078728

PATIENT
  Sex: Female

DRUGS (2)
  1. PREDNISONE [Suspect]
     Active Substance: PREDNISONE
     Indication: Systemic lupus erythematosus
     Dosage: UNK, QD
     Route: 048
  2. PREDNISONE [Suspect]
     Active Substance: PREDNISONE
     Indication: Lupus nephritis

REACTIONS (15)
  - Chronic cutaneous lupus erythematosus [Unknown]
  - Inflammation [Unknown]
  - Renal failure [Unknown]
  - Joint injury [Unknown]
  - Brain fog [Unknown]
  - Depression [Unknown]
  - Weight increased [Unknown]
  - Self esteem decreased [Unknown]
  - Fatigue [Unknown]
  - Arthralgia [Unknown]
  - Musculoskeletal stiffness [Unknown]
  - Asthenia [Unknown]
  - Alopecia [Unknown]
  - Weight decreased [Unknown]
  - Drug ineffective [Unknown]
